FAERS Safety Report 18756288 (Version 1)
Quarter: 2021Q1

REPORT INFORMATION
  Report Type: Spontaneous
  Country: US (occurrence: US)
  Receive Date: 20210115
  Receipt Date: 20210115
  Transmission Date: 20210419
  Serious: Yes (Other)
  Sender: FDA-Public Use
  Company Number: None

PATIENT
  Sex: Female

DRUGS (1)
  1. CYCLOPHOSPHAMIDE 25MG ROXANE [Suspect]
     Active Substance: CYCLOPHOSPHAMIDE
     Indication: RENAL DISORDER
     Route: 048
     Dates: start: 202012

REACTIONS (4)
  - Dyspnoea [None]
  - Haematochezia [None]
  - Therapy cessation [None]
  - Abdominal discomfort [None]
